FAERS Safety Report 17027656 (Version 1)
Quarter: 2019Q4

REPORT INFORMATION
  Report Type: Spontaneous
  Country: US (occurrence: US)
  Receive Date: 20191113
  Receipt Date: 20191113
  Transmission Date: 20200122
  Serious: Yes (Death, Other)
  Sender: FDA-Public Use
  Company Number: US-SA-2019SA313109

PATIENT
  Sex: Male

DRUGS (1)
  1. BCG FOR IMMUNOTHERAPY [Suspect]
     Active Substance: BACILLUS CALMETTE-GUERIN ANTIGEN, UNSPECIFIED SUBSTRAIN
     Indication: BLADDER CANCER
     Dosage: UNK
     Route: 043

REACTIONS (6)
  - Weight decreased [Fatal]
  - Disseminated Bacillus Calmette-Guerin infection [Fatal]
  - Parotid gland enlargement [Fatal]
  - Decreased appetite [Fatal]
  - Night sweats [Fatal]
  - Parotitis [Fatal]
